FAERS Safety Report 10785905 (Version 1)
Quarter: 2015Q1

REPORT INFORMATION
  Report Type: Spontaneous
  Country: US (occurrence: None)
  Receive Date: 20150210
  Receipt Date: 20150210
  Transmission Date: 20150721
  Serious: No
  Sender: FDA-Public Use
  Company Number: None

PATIENT
  Age: 77 Year
  Sex: Male
  Weight: 79.38 kg

DRUGS (1)
  1. CIALIS [Suspect]
     Active Substance: TADALAFIL
     Route: 048

REACTIONS (5)
  - Skin fissures [None]
  - Dysstasia [None]
  - Skin ulcer [None]
  - Erythema [None]
  - Gait disturbance [None]

NARRATIVE: CASE EVENT DATE: 20150202
